FAERS Safety Report 23867599 (Version 1)
Quarter: 2024Q2

REPORT INFORMATION
  Report Type: Spontaneous
  Country: US (occurrence: None)
  Receive Date: 20240516
  Receipt Date: 20240516
  Transmission Date: 20240715
  Serious: No
  Sender: FDA-Public Use
  Company Number: None

PATIENT
  Age: 70 Year
  Sex: Female
  Weight: 75.75 kg

DRUGS (2)
  1. XELJANZ [Suspect]
     Active Substance: TOFACITINIB CITRATE
     Indication: Psoriasis
     Dosage: FREQUENCY : TWICE A DAY;?
     Route: 048
     Dates: start: 202401
  2. XELJANZ [Suspect]
     Active Substance: TOFACITINIB CITRATE
     Indication: Rheumatoid arthritis

REACTIONS (1)
  - Gingivitis [None]
